FAERS Safety Report 11865714 (Version 1)
Quarter: 2015Q4

REPORT INFORMATION
  Report Type: Spontaneous
  Country: DE (occurrence: DE)
  Receive Date: 20151223
  Receipt Date: 20151223
  Transmission Date: 20160305
  Serious: Yes (Hospitalization)
  Sender: FDA-Public Use
  Company Number: DE-TEVA-620290GER

PATIENT
  Age: 62 Year
  Sex: Male
  Weight: 90 kg

DRUGS (1)
  1. CAPECITABIN [Suspect]
     Active Substance: CAPECITABINE
     Indication: SMALL INTESTINE CARCINOMA
     Dosage: 2000 MG-0 MG-1500 MG
     Route: 048
     Dates: start: 20151025, end: 20151030

REACTIONS (7)
  - Dizziness [Recovered/Resolved]
  - Aphasia [Recovered/Resolved]
  - Electrocardiogram ST segment elevation [Recovered/Resolved]
  - Asthenia [Recovered/Resolved]
  - White matter lesion [Recovered/Resolved]
  - Chest discomfort [Recovered/Resolved]
  - Language disorder [Recovered/Resolved]

NARRATIVE: CASE EVENT DATE: 20151029
